FAERS Safety Report 5952007-0 (Version None)
Quarter: 2008Q4

REPORT INFORMATION
  Report Type: 
  Country: None (occurrence: None)
  Receive Date: 20081113
  Receipt Date: 20071107
  Transmission Date: 20090506
  Serious: No
  Sender: FDA-Public Use
  Company Number: A0694259A

PATIENT
  Sex: Female

DRUGS (2)
  1. COREG [Suspect]
     Indication: DRUG USE FOR UNKNOWN INDICATION
     Route: 048
  2. UNKNOWN [Concomitant]

REACTIONS (4)
  - MOOD ALTERED [None]
  - PERFORMANCE STATUS DECREASED [None]
  - PSYCHIATRIC SYMPTOM [None]
  - SEDATION [None]
